FAERS Safety Report 18279227 (Version 2)
Quarter: 2020Q3

REPORT INFORMATION
  Report Type: Report from Study
  Country: US (occurrence: US)
  Receive Date: 20200917
  Receipt Date: 20200928
  Transmission Date: 20201103
  Serious: Yes (Hospitalization)
  Sender: FDA-Public Use
  Company Number: US-PFIZER INC-2020263876

PATIENT
  Age: 49 Year
  Sex: Female

DRUGS (3)
  1. LETROZOLE. [Suspect]
     Active Substance: LETROZOLE
     Dosage: UNK
  2. IBRANCE [Suspect]
     Active Substance: PALBOCICLIB
     Indication: BREAST CANCER FEMALE
     Dosage: 125 MG, CYCLIC (DAILY FOR 21 DAYS ON, AND 7 DAYS OFF)
     Route: 048
     Dates: start: 20200615, end: 20200810
  3. IBRANCE [Suspect]
     Active Substance: PALBOCICLIB
     Dosage: 125 MG, CYCLIC (DAILY TIMES 21 DAYS, 7 DAYS OFF)
     Route: 048
     Dates: start: 20200817

REACTIONS (10)
  - Somnolence [Unknown]
  - Blood albumin decreased [Unknown]
  - Blood sodium decreased [Not Recovered/Not Resolved]
  - Myalgia [Recovering/Resolving]
  - Haemoglobin decreased [Unknown]
  - Condition aggravated [Unknown]
  - Constipation [Unknown]
  - Fatigue [Unknown]
  - Dehydration [Unknown]
  - Protein total decreased [Unknown]

NARRATIVE: CASE EVENT DATE: 2020
